FAERS Safety Report 8544474-3 (Version None)
Quarter: 2012Q3

REPORT INFORMATION
  Report Type: 
  Country: None (occurrence: None)
  Receive Date: 20120727
  Receipt Date: 20120718
  Transmission Date: 20120928
  Serious: Yes (Hospitalization)
  Sender: FDA-Public Use
  Company Number: FR-ASTRAZENECA-2012SE45653

PATIENT
  Age: 29633 Day
  Sex: Male

DRUGS (2)
  1. GONADORELIN INJ [Suspect]
     Indication: PROSTATE CANCER
     Dates: start: 20120101
  2. CASODEX [Suspect]
     Indication: PROSTATE CANCER
     Route: 048

REACTIONS (8)
  - CARDIAC FAILURE [None]
  - VENTRICULAR EXTRASYSTOLES [None]
  - DYSPNOEA [None]
  - HYPOTENSION [None]
  - HYPONATRAEMIA [None]
  - TACHYPNOEA [None]
  - BUNDLE BRANCH BLOCK LEFT [None]
  - RENAL FAILURE ACUTE [None]
